FAERS Safety Report 23074819 (Version 1)
Quarter: 2023Q4

REPORT INFORMATION
  Report Type: Spontaneous
  Country: US (occurrence: US)
  Receive Date: 20231017
  Receipt Date: 20231017
  Transmission Date: 20240109
  Serious: Yes (Death, Hospitalization, Other)
  Sender: FDA-Public Use
  Company Number: US-SA-SAC20231016001444

PATIENT

DRUGS (1)
  1. ENJAYMO [Suspect]
     Active Substance: SUTIMLIMAB-JOME
     Indication: Cold type haemolytic anaemia
     Dosage: 1 DF, 1X
     Route: 065

REACTIONS (5)
  - Cold type haemolytic anaemia [Fatal]
  - Haemolysis [Fatal]
  - Pulmonary embolism [Fatal]
  - Anaemia [Fatal]
  - Blood lactic acid increased [Fatal]
